FAERS Safety Report 7220765-3 (Version None)
Quarter: 2011Q1

REPORT INFORMATION
  Report Type: 
  Country: None (occurrence: None)
  Receive Date: 20110111
  Receipt Date: 20110104
  Transmission Date: 20110831
  Serious: Yes (Life-Threatening, Hospitalization)
  Sender: FDA-Public Use
  Company Number: CH-PFIZER INC-2011001367

PATIENT
  Age: 51 Year
  Sex: Male

DRUGS (16)
  1. OXYCONTIN [Suspect]
     Dosage: 120 MG, SINGLE
     Route: 048
     Dates: start: 20101218, end: 20101218
  2. LYRICA [Suspect]
     Dosage: 50 MG, SINGLE
     Route: 048
     Dates: start: 20101218, end: 20101218
  3. DEXAMETHASONE [Concomitant]
     Dosage: 4 MG, SINGLE
     Route: 048
     Dates: start: 20101218, end: 20101218
  4. OXYCONTIN [Suspect]
     Dosage: 5 MG, 2X/DAY
     Route: 045
     Dates: start: 20101220
  5. DAFALGAN [Concomitant]
     Indication: PAIN
     Dosage: 1000 MG, SINGLE
     Route: 048
     Dates: start: 20101218, end: 20101218
  6. IMPORTAL [Concomitant]
     Dosage: 30 ML, 1X/DAY
     Route: 048
  7. MAGNESIOCARD [Concomitant]
     Dosage: 5 MMOL, 1X/DAY
     Route: 048
  8. LORAZEPAM [Concomitant]
     Dosage: 1 MG, 2X/DAY
     Route: 048
  9. OXYCONTIN [Suspect]
     Indication: PAIN
     Dosage: 5 MG, 2X/DAY
     Route: 045
     Dates: start: 20101101, end: 20101217
  10. NEXIUM [Concomitant]
     Dosage: 40 MG, SINGLE
     Route: 048
     Dates: start: 20101218, end: 20101218
  11. DAFALGAN [Concomitant]
     Dosage: 500 MG, 1X/DAY
     Route: 048
  12. FOLATE [Concomitant]
     Dosage: 5 MG, SINGLE
     Route: 048
     Dates: start: 20101218, end: 20101218
  13. TORASEMIDE [Concomitant]
     Dosage: 20 MG, SINGLE
     Route: 048
     Dates: start: 20101218, end: 20101218
  14. ALDACTONE [Concomitant]
     Dosage: 100 MG, 1X/DAY
     Route: 048
  15. SUPRADYN [Concomitant]
     Dosage: 1 DF, 1X/DAY
     Route: 048
  16. EFFEXOR [Suspect]
     Dosage: 75 MG, SINGLE
     Route: 048
     Dates: start: 20101218, end: 20101218

REACTIONS (4)
  - MIOSIS [None]
  - RESPIRATORY DEPRESSION [None]
  - DRUG ADMINISTRATION ERROR [None]
  - SOMNOLENCE [None]
